FAERS Safety Report 19008762 (Version 1)
Quarter: 2021Q1

REPORT INFORMATION
  Report Type: Spontaneous
  Country: TR (occurrence: TR)
  Receive Date: 20210316
  Receipt Date: 20210316
  Transmission Date: 20210420
  Serious: Yes (Death, Hospitalization, Other)
  Sender: FDA-Public Use
  Company Number: TR-SUN PHARMACEUTICAL INDUSTRIES LTD-2021RR-285708

PATIENT
  Age: 43 Year
  Sex: Female
  Weight: 78 kg

DRUGS (4)
  1. CALCIUM FOLINAT [Suspect]
     Active Substance: LEUCOVORIN CALCIUM
     Indication: PRODUCT USED FOR UNKNOWN INDICATION
     Dosage: INTWO?WEEK CYCLES BETWEEN
     Route: 065
     Dates: start: 201902, end: 201905
  2. FLUOROURACIL. [Suspect]
     Active Substance: FLUOROURACIL
     Indication: PRODUCT USED FOR UNKNOWN INDICATION
     Dosage: INTWO?WEEK CYCLES
     Route: 065
     Dates: start: 201902, end: 201905
  3. OXALIPLATIN. [Suspect]
     Active Substance: OXALIPLATIN
     Indication: PRODUCT USED FOR UNKNOWN INDICATION
     Dosage: INTWO?WEEK CYCLES BETWEEN
     Route: 065
     Dates: start: 201902, end: 201905
  4. IRINOTECAN [Suspect]
     Active Substance: IRINOTECAN
     Indication: PRODUCT USED FOR UNKNOWN INDICATION
     Dosage: INTWO?WEEK CYCLES BETWEEN
     Route: 065
     Dates: start: 201902, end: 201905

REACTIONS (5)
  - Neurotoxicity [Unknown]
  - Steatohepatitis [Fatal]
  - Anaemia [Unknown]
  - Thrombocytopenia [Unknown]
  - Hepatic failure [Fatal]
